FAERS Safety Report 5305542-2 (Version None)
Quarter: 2007Q2

REPORT INFORMATION
  Report Type: 
  Country: None (occurrence: None)
  Receive Date: 20070424
  Receipt Date: 20070104
  Transmission Date: 20071010
  Serious: No
  Sender: FDA-Public Use
  Company Number: US-GLAXOSMITHKLINE-A0634549A

PATIENT
  Age: 5 Month
  Sex: Female

DRUGS (2)
  1. FLOVENT [Suspect]
     Indication: DRUG USE FOR UNKNOWN INDICATION
     Route: 055
  2. ALBUTEROL [Suspect]
     Indication: DRUG USE FOR UNKNOWN INDICATION
     Route: 055

REACTIONS (3)
  - DRUG ADMINISTRATION ERROR [None]
  - FREQUENT BOWEL MOVEMENTS [None]
  - PSYCHOMOTOR HYPERACTIVITY [None]
